FAERS Safety Report 6190035-3 (Version None)
Quarter: 2009Q2

REPORT INFORMATION
  Report Type: 
  Country: None (occurrence: None)
  Receive Date: 20090512
  Receipt Date: 20090512
  Transmission Date: 20091009
  Serious: No
  Sender: FDA-Public Use
  Company Number: None

PATIENT
  Age: 35 Year
  Sex: Female
  Weight: 53.0709 kg

DRUGS (2)
  1. LEVAQUIN [Suspect]
     Indication: BRONCHITIS
     Dosage: 1 PILL ONCE
  2. LEVAQUIN [Suspect]
     Indication: SINUSITIS
     Dosage: 1 PILL ONCE

REACTIONS (6)
  - ARTHRALGIA [None]
  - FEELING ABNORMAL [None]
  - INSOMNIA [None]
  - NERVOUSNESS [None]
  - PAIN IN EXTREMITY [None]
  - RESTLESSNESS [None]
